FAERS Safety Report 14347672 (Version 1)
Quarter: 2018Q1

REPORT INFORMATION
  Report Type: Spontaneous
  Country: US (occurrence: US)
  Receive Date: 20180102
  Receipt Date: 20180102
  Transmission Date: 20180509
  Serious: Yes (Hospitalization)
  Sender: FDA-Public Use
  Company Number: None

PATIENT
  Age: 57 Year
  Sex: Female

DRUGS (10)
  1. RITALN [Concomitant]
  2. EXJADE [Suspect]
     Active Substance: DEFERASIROX
     Indication: IRON METABOLISM DISORDER
     Route: 048
     Dates: start: 20120726
  3. FA [Concomitant]
  4. MS CONT [Concomitant]
  5. PROLIA [Concomitant]
     Active Substance: DENOSUMAB
  6. DILAUDID [Concomitant]
     Active Substance: HYDROMORPHONE HYDROCHLORIDE
  7. METHLYPHENIDATE HCL [Concomitant]
     Active Substance: METHYLPHENIDATE HYDROCHLORIDE
  8. EXJADE [Suspect]
     Active Substance: DEFERASIROX
  9. NEOMYCIN. [Concomitant]
     Active Substance: NEOMYCIN
  10. WELLBUTR [Concomitant]

REACTIONS (1)
  - Sickle cell anaemia with crisis [None]

NARRATIVE: CASE EVENT DATE: 20171228
